FAERS Safety Report 9158702 (Version 1)
Quarter: 2013Q1

REPORT INFORMATION
  Report Type: Spontaneous
  Country: US (occurrence: US)
  Receive Date: 20130312
  Receipt Date: 20130312
  Transmission Date: 20140127
  Serious: Yes (Hospitalization)
  Sender: FDA-Public Use
  Company Number: US-MYLANLABS-2013S1004670

PATIENT
  Age: 79 Year
  Sex: Female

DRUGS (10)
  1. MIRTAZAPINE [Suspect]
     Indication: DEPRESSION
     Dosage: 30 MG/DAY; INCREASED TO 45 MG/DAY
     Route: 065
  2. MIRTAZAPINE [Suspect]
     Indication: ANXIETY
     Dosage: 30 MG/DAY; INCREASED TO 45 MG/DAY
     Route: 065
  3. MIRTAZAPINE [Suspect]
     Indication: DEPRESSION
     Dosage: 45 MG/DAY
     Route: 065
  4. MIRTAZAPINE [Suspect]
     Indication: ANXIETY
     Dosage: 45 MG/DAY
     Route: 065
  5. DONEPEZIL [Suspect]
     Indication: DEPRESSION
     Dosage: 5MG; INCREASED TO 10MG
     Route: 065
  6. DONEPEZIL [Suspect]
     Indication: ANXIETY
     Dosage: 5MG; INCREASED TO 10MG
     Route: 065
  7. DONEPEZIL [Suspect]
     Indication: DEPRESSION
     Dosage: 10MG
     Route: 065
  8. DONEPEZIL [Suspect]
     Indication: ANXIETY
     Dosage: 10MG
     Route: 065
  9. ESZOPICLONE [Concomitant]
     Indication: DEPRESSION
     Dosage: 2MG
     Route: 065
  10. ESZOPICLONE [Concomitant]
     Indication: ANXIETY
     Dosage: 2MG
     Route: 065

REACTIONS (1)
  - Encephalopathy [Recovering/Resolving]
